FAERS Safety Report 6494461-4 (Version None)
Quarter: 2009Q4

REPORT INFORMATION
  Report Type: 
  Country: None (occurrence: None)
  Receive Date: 20091214
  Receipt Date: 20090227
  Transmission Date: 20100525
  Serious: Yes (Other)
  Sender: FDA-Public Use
  Company Number: US-BRISTOL-MYERS SQUIBB COMPANY-14514384

PATIENT
  Sex: Male

DRUGS (2)
  1. ABILIFY [Suspect]
  2. ANTIDEPRESSANT NOS [Concomitant]

REACTIONS (1)
  - TYPE 2 DIABETES MELLITUS [None]
